FAERS Safety Report 5247607-X (Version None)
Quarter: 2007Q1

REPORT INFORMATION
  Report Type: 
  Country: None (occurrence: None)
  Receive Date: 20070227
  Receipt Date: 20061127
  Transmission Date: 20070707
  Serious: No
  Sender: FDA-Public Use
  Company Number: US-AMGEN-US201331

PATIENT
  Sex: Female

DRUGS (2)
  1. KEPIVANCE [Suspect]
     Indication: STOMATITIS
     Dates: start: 20060901, end: 20061001
  2. MELPHALAN [Concomitant]
     Dates: start: 20061002, end: 20061003

REACTIONS (7)
  - ARTHRALGIA [None]
  - HYPERAESTHESIA [None]
  - NERVOUS SYSTEM DISORDER [None]
  - PRURITUS [None]
  - RASH ERYTHEMATOUS [None]
  - RASH MACULO-PAPULAR [None]
  - SKIN EXFOLIATION [None]
